FAERS Safety Report 7724088-5 (Version None)
Quarter: 2011Q3

REPORT INFORMATION
  Report Type: 
  Country: None (occurrence: None)
  Receive Date: 20110901
  Receipt Date: 20110104
  Transmission Date: 20111222
  Serious: No
  Sender: FDA-Public Use
  Company Number: US-BAYER-2011-002203

PATIENT
  Sex: Female

DRUGS (2)
  1. MIRENA [Suspect]
     Indication: CONTRACEPTION
     Dosage: 1TH MIRENA 20 MCG/24HR, CONT
     Route: 015
     Dates: start: 20100930, end: 20101227
  2. MIRENA [Suspect]
     Dosage: 2ND: 20 MCG/24HR, CONT
     Route: 015
     Dates: start: 20101227

REACTIONS (5)
  - PRESYNCOPE [None]
  - MEDICAL DEVICE PAIN [None]
  - DEVICE EXPULSION [None]
  - MUSCLE TWITCHING [None]
  - FEELING COLD [None]
